FAERS Safety Report 11384620 (Version 1)
Quarter: 2015Q3

REPORT INFORMATION
  Report Type: Spontaneous
  Country: US (occurrence: US)
  Receive Date: 20150811
  Receipt Date: 20150811
  Transmission Date: 20151125
  Serious: No
  Sender: FDA-Public Use
  Company Number: US-ELI_LILLY_AND_COMPANY-US201104004996

PATIENT
  Sex: Male
  Weight: 97.51 kg

DRUGS (9)
  1. MAGNESIUM [Concomitant]
     Active Substance: MAGNESIUM
  2. CIALIS [Suspect]
     Active Substance: TADALAFIL
     Indication: ERECTILE DYSFUNCTION
     Dosage: 5 MG, QD
     Dates: start: 20110208
  3. VITAMIN D [Concomitant]
     Active Substance: CHOLECALCIFEROL
  4. LOTRIL                             /00574902/ [Concomitant]
  5. VITAMIN C [Concomitant]
     Active Substance: ASCORBIC ACID
  6. COENZYME Q10 [Concomitant]
     Active Substance: UBIDECARENONE
  7. VITAMIN B [Concomitant]
     Active Substance: VITAMIN B
  8. L-ARGININE                         /00126102/ [Concomitant]
  9. SAW PALMETTO [Concomitant]
     Active Substance: SAW PALMETTO

REACTIONS (2)
  - Adverse event [Unknown]
  - Drug ineffective [Recovered/Resolved]
